FAERS Safety Report 9863071 (Version 2)
Quarter: 2014Q1

REPORT INFORMATION
  Report Type: Spontaneous
  Country: CA (occurrence: CA)
  Receive Date: 20140203
  Receipt Date: 20140207
  Transmission Date: 20141002
  Serious: Yes (Other)
  Sender: FDA-Public Use
  Company Number: CA-VERTEX PHARMACEUTICALS INC-2014-000488

PATIENT
  Age: 55 Year
  Sex: Male

DRUGS (11)
  1. CASTOR OIL [Concomitant]
     Route: 048
  2. COD LIVER OIL [Concomitant]
  3. FOLIC ACID [Concomitant]
  4. OMEGA 3 [Concomitant]
  5. VITAMIN B COMPLEX [Concomitant]
  6. VITAMIN B12 [Concomitant]
  7. INCIVEK [Suspect]
     Indication: HEPATITIS C
     Dosage: 750 MG, TID
     Route: 048
  8. INCIVEK [Suspect]
     Dosage: 375 MG, BID
     Route: 048
  9. INCIVEK [Suspect]
     Dosage: 375 MG, BID
     Route: 048
  10. PEGASYS [Suspect]
     Indication: HEPATITIS C
     Dosage: 180 ?G, QW
     Route: 058
  11. RIBAVIRIN [Suspect]
     Indication: HEPATITIS C
     Dosage: UNK
     Route: 048

REACTIONS (4)
  - Epistaxis [Not Recovered/Not Resolved]
  - Haematochezia [Not Recovered/Not Resolved]
  - Platelet count decreased [Not Recovered/Not Resolved]
  - Drug ineffective [Not Recovered/Not Resolved]
